FAERS Safety Report 7783369-X (Version None)
Quarter: 2011Q3

REPORT INFORMATION
  Report Type: 
  Country: None (occurrence: None)
  Receive Date: 20110928
  Receipt Date: 20110923
  Transmission Date: 20111222
  Serious: Yes (Death, Other)
  Sender: FDA-Public Use
  Company Number: GB-SANOFI-AVENTIS-2011SA062708

PATIENT
  Age: 68 Year
  Sex: Male

DRUGS (2)
  1. OXALIPLATIN [Suspect]
     Indication: RECTAL CANCER
     Dates: start: 20110516, end: 20110808
  2. FLUOROURACIL [Suspect]
     Indication: RECTAL CANCER
     Dates: start: 20110516, end: 20110808

REACTIONS (2)
  - ACUTE HEPATIC FAILURE [None]
  - EMBOLISM VENOUS [None]
